FAERS Safety Report 24898734 (Version 1)
Quarter: 2025Q1

REPORT INFORMATION
  Report Type: Spontaneous
  Country: US (occurrence: US)
  Receive Date: 20250129
  Receipt Date: 20250129
  Transmission Date: 20250409
  Serious: Yes (Other)
  Sender: CIPLA
  Company Number: US-CIPLA LTD.-2024US08503

PATIENT

DRUGS (4)
  1. ESCITALOPRAM [Interacting]
     Active Substance: ESCITALOPRAM OXALATE
     Route: 064
  2. GABAPENTIN [Interacting]
     Active Substance: GABAPENTIN
     Route: 064
  3. CLONAZEPAM [Interacting]
     Active Substance: CLONAZEPAM
     Route: 064
  4. METHADONE [Interacting]
     Active Substance: METHADONE HYDROCHLORIDE
     Route: 064

REACTIONS (5)
  - Drug interaction [Unknown]
  - Hypertonia neonatal [Recovered/Resolved]
  - Foetal exposure during pregnancy [Unknown]
  - Infantile back arching [Recovered/Resolved]
  - Tremor [Recovered/Resolved]
